FAERS Safety Report 15089420 (Version 1)
Quarter: 2018Q2

REPORT INFORMATION
  Report Type: Spontaneous
  Country: US (occurrence: US)
  Receive Date: 20180608
  Receipt Date: 20180608
  Transmission Date: 20180711
  Serious: Yes (Life-Threatening, Hospitalization)
  Sender: FDA-Public Use
  Company Number: None

PATIENT
  Age: 61 Year
  Sex: Female
  Weight: 52 kg

DRUGS (3)
  1. PLAQUENIL [Suspect]
     Active Substance: HYDROXYCHLOROQUINE SULFATE
     Indication: SYSTEMIC LUPUS ERYTHEMATOSUS
     Route: 048
  2. WARFARIN [Concomitant]
     Active Substance: WARFARIN
  3. LAMOTRIGINE. [Concomitant]
     Active Substance: LAMOTRIGINE

REACTIONS (13)
  - Platelet count decreased [None]
  - Red blood cell count decreased [None]
  - Bone marrow failure [None]
  - Hypercoagulation [None]
  - Refusal of treatment by patient [None]
  - Fall [None]
  - Pain [None]
  - Haemoglobin decreased [None]
  - Anaemia [None]
  - Thrombocytopenia [None]
  - Psychotic disorder [None]
  - Haematocrit decreased [None]
  - Antiphospholipid syndrome [None]

NARRATIVE: CASE EVENT DATE: 20180601
